FAERS Safety Report 4311082-X (Version None)
Quarter: 2004Q1

REPORT INFORMATION
  Report Type: 
  Country: None (occurrence: None)
  Receive Date: 20040302
  Receipt Date: 20040302
  Transmission Date: 20041129
  Serious: Yes (Life-Threatening, Hospitalization)
  Sender: FDA-Public Use
  Company Number: None

PATIENT
  Age: 54 Year
  Sex: Male
  Weight: 85.7 kg

DRUGS (11)
  1. BACTRIM [Suspect]
  2. HYDROXYZINE [Concomitant]
  3. LISINOPRIL [Concomitant]
  4. CETIRIZINE HCL [Concomitant]
  5. TEMAZEPAM [Concomitant]
  6. CODEINE SULFATE [Concomitant]
  7. OXAZEPAM [Concomitant]
  8. DOXEPIN HCL [Concomitant]
  9. CITALOPRAM [Concomitant]
  10. GLYBURIDE [Concomitant]
  11. GATIFLOXACIN [Concomitant]

REACTIONS (1)
  - THROMBOCYTOPENIA [None]
